FAERS Safety Report 17839917 (Version 1)
Quarter: 2020Q2

REPORT INFORMATION
  Report Type: Spontaneous
  Country: IT (occurrence: IT)
  Receive Date: 20200529
  Receipt Date: 20200529
  Transmission Date: 20200714
  Serious: Yes (Death)
  Sender: FDA-Public Use
  Company Number: IT-ROCHE-2608904

PATIENT
  Age: 62 Year
  Sex: Male
  Weight: 200 kg

DRUGS (3)
  1. RITONAVIR. [Concomitant]
     Active Substance: RITONAVIR
     Indication: CORONAVIRUS INFECTION
     Route: 048
     Dates: start: 20200326, end: 20200326
  2. ROACTEMRA [Suspect]
     Active Substance: TOCILIZUMAB
     Indication: CORONAVIRUS INFECTION
     Route: 058
     Dates: start: 20200327, end: 20200327
  3. DARUNAVIR [Concomitant]
     Active Substance: DARUNAVIR
     Indication: CORONAVIRUS INFECTION
     Route: 048
     Dates: start: 20200326, end: 20200326

REACTIONS (2)
  - Off label use [Fatal]
  - Condition aggravated [Fatal]

NARRATIVE: CASE EVENT DATE: 20200328
